FAERS Safety Report 15058356 (Version 1)
Quarter: 2018Q2

REPORT INFORMATION
  Report Type: Spontaneous
  Country: US (occurrence: US)
  Receive Date: 20180604
  Receipt Date: 20180604
  Transmission Date: 20180711
  Serious: Yes (Death)
  Sender: FDA-Public Use
  Company Number: None

PATIENT
  Age: 75 Year
  Sex: Male

DRUGS (24)
  1. CLARITIN-D NOS [Concomitant]
     Active Substance: LORATADINE\PSEUDOEPHEDRINE SULFATE
  2. PROCHLORPER [Concomitant]
  3. FUROSEMIDE. [Concomitant]
     Active Substance: FUROSEMIDE
  4. POT CL MICRO [Concomitant]
  5. SERTRALINE [Concomitant]
     Active Substance: SERTRALINE HYDROCHLORIDE
  6. TEMAZEPAM. [Concomitant]
     Active Substance: TEMAZEPAM
  7. XARELTO [Concomitant]
     Active Substance: RIVAROXABAN
  8. METFORMIN [Concomitant]
     Active Substance: METFORMIN HYDROCHLORIDE
  9. NEULASTA [Concomitant]
     Active Substance: PEGFILGRASTIM
  10. OXYCONTIN [Concomitant]
     Active Substance: OXYCODONE HYDROCHLORIDE
  11. ALBUTEROL. [Concomitant]
     Active Substance: ALBUTEROL
  12. DILTIAZEM. [Concomitant]
     Active Substance: DILTIAZEM
  13. FLUTICASONE. [Concomitant]
     Active Substance: FLUTICASONE
  14. MORPHINE SUL [Concomitant]
     Active Substance: MORPHINE SULFATE
  15. TRAMADOL. [Concomitant]
     Active Substance: TRAMADOL
  16. ALLOPURINOL. [Concomitant]
     Active Substance: ALLOPURINOL
  17. DIGOX [Concomitant]
     Active Substance: DIGOXIN
  18. HYDROCO/APAP [Concomitant]
     Active Substance: ACETAMINOPHEN\HYDROCODONE
  19. TRAZODONE [Concomitant]
     Active Substance: TRAZODONE HYDROCHLORIDE
  20. LORAZEPAM. [Concomitant]
     Active Substance: LORAZEPAM
  21. ONDANSETRON [Concomitant]
     Active Substance: ONDANSETRON
  22. TORSEMIDE. [Concomitant]
     Active Substance: TORSEMIDE
  23. ESBRIET [Suspect]
     Active Substance: PIRFENIDONE
     Indication: IDIOPATHIC PULMONARY FIBROSIS
     Dosage: THREE 267MG TABS 3 TIMES DAILY ORALLY
     Route: 048
     Dates: start: 20171013
  24. ACYCLOVIR. [Concomitant]
     Active Substance: ACYCLOVIR

REACTIONS (1)
  - Death [None]

NARRATIVE: CASE EVENT DATE: 20180528
